FAERS Safety Report 6471497-0 (Version None)
Quarter: 2009Q4

REPORT INFORMATION
  Report Type: 
  Country: None (occurrence: None)
  Receive Date: 20091203
  Receipt Date: 20090219
  Transmission Date: 20100525
  Serious: Yes (Hospitalization, Other)
  Sender: FDA-Public Use
  Company Number: US-ELI_LILLY_AND_COMPANY-US200802006182

PATIENT
  Sex: Female
  Weight: 131.52 kg

DRUGS (4)
  1. ZYPREXA [Suspect]
     Dosage: 5 MG, UNKNOWN
     Route: 065
     Dates: start: 20021101
  2. ZYPREXA [Suspect]
     Dosage: 15 MG, UNK
     Dates: end: 20050327
  3. ARIPIPRAZOLE [Concomitant]
     Dates: start: 20040106
  4. QUETIAPINE [Concomitant]
     Dates: start: 20040102

REACTIONS (10)
  - DEPRESSION [None]
  - DIABETES MELLITUS [None]
  - DIABETIC KETOACIDOSIS [None]
  - HEPATITIS VIRAL [None]
  - HYPERGLYCAEMIC HYPEROSMOLAR NONKETOTIC SYNDROME [None]
  - HYPOGLYCAEMIA [None]
  - LACTIC ACIDOSIS [None]
  - METABOLIC ACIDOSIS [None]
  - METABOLIC DISORDER [None]
  - PANCREATITIS [None]
